FAERS Safety Report 25726565 (Version 1)
Quarter: 2025Q3

REPORT INFORMATION
  Report Type: Spontaneous
  Country: US (occurrence: US)
  Receive Date: 20250826
  Receipt Date: 20250826
  Transmission Date: 20251021
  Serious: Yes (Hospitalization, Other)
  Sender: ALEMBIC
  Company Number: US-ALEMBIC PHARMACUETICALS LIMITED-2025SCAL001089

PATIENT

DRUGS (5)
  1. PACLITAXEL [Suspect]
     Active Substance: PACLITAXEL
     Indication: Endometrial cancer stage III
     Route: 042
  2. PACLITAXEL [Suspect]
     Active Substance: PACLITAXEL
     Route: 042
  3. CARBOPLATIN [Suspect]
     Active Substance: CARBOPLATIN
     Indication: Endometrial cancer stage III
     Route: 042
  4. IBUPROFEN [Concomitant]
     Active Substance: IBUPROFEN
     Indication: Abdominal pain lower
     Route: 065
  5. LEVOTHYROXINE [Concomitant]
     Active Substance: LEVOTHYROXINE
     Indication: Hypothyroidism
     Route: 065

REACTIONS (13)
  - Gastritis haemorrhagic [Recovered/Resolved]
  - Anaemia [Recovered/Resolved]
  - Fatigue [Recovered/Resolved]
  - Melaena [Recovered/Resolved]
  - Pyrexia [Unknown]
  - Upper gastrointestinal haemorrhage [Recovered/Resolved]
  - Gastric mucosa erythema [Recovered/Resolved]
  - Abdominal pain upper [Recovered/Resolved]
  - Gastric haemorrhage [Recovered/Resolved]
  - Pallor [Recovered/Resolved]
  - Febrile neutropenia [Unknown]
  - Therapy interrupted [Unknown]
  - Paraesthesia [Unknown]
